FAERS Safety Report 7364845-0 (Version None)
Quarter: 2011Q1

REPORT INFORMATION
  Report Type: 
  Country: None (occurrence: None)
  Receive Date: 20110321
  Receipt Date: 20110309
  Transmission Date: 20110831
  Serious: Yes (Hospitalization)
  Sender: FDA-Public Use
  Company Number: PHHY2011DE19568

PATIENT
  Age: 36 Year
  Sex: Male

DRUGS (5)
  1. MIVACRON [Concomitant]
     Indication: GENERAL ANAESTHESIA
  2. ULTIVA [Concomitant]
     Indication: GENERAL ANAESTHESIA
  3. DESFLURANE [Concomitant]
     Indication: GENERAL ANAESTHESIA
  4. PROPOFOL [Concomitant]
     Indication: GENERAL ANAESTHESIA
  5. DAFIRO HCT [Suspect]
     Dosage: AMLODIPIN 10MG, VALSARTAN 320MG, HYDROCHLOROTHIAZIDE 25MG
     Route: 048

REACTIONS (3)
  - DELAYED RECOVERY FROM ANAESTHESIA [None]
  - RESPIRATORY ARREST [None]
  - INSOMNIA [None]
